FAERS Safety Report 5654493-2 (Version None)
Quarter: 2008Q1

REPORT INFORMATION
  Report Type: 
  Country: None (occurrence: None)
  Receive Date: 20080205
  Receipt Date: 20070823
  Transmission Date: 20080703
  Serious: Yes (Hospitalization)
  Sender: FDA-Public Use
  Company Number: MEDI-0005922

PATIENT
  Age: 69 Year
  Sex: Male
  Weight: 100.6985 kg

DRUGS (10)
  1. ETHYOL [Suspect]
     Dates: start: 20070101, end: 20070723
  2. ETHYOL [Suspect]
     Dates: start: 20070725, end: 20070726
  3. RADIATION THERAPY [Concomitant]
  4. CISPLATIN [Concomitant]
  5. DEXAMETHASONE TAB [Concomitant]
  6. KYTRIL [Concomitant]
  7. COMPAZINE [Concomitant]
  8. ZYRTEC [Concomitant]
  9. BENADRYL [Concomitant]
  10. ATIVAN [Concomitant]

REACTIONS (2)
  - ATRIAL FIBRILLATION [None]
  - VOMITING [None]
